FAERS Safety Report 17880537 (Version 1)
Quarter: 2020Q2

REPORT INFORMATION
  Report Type: Spontaneous
  Country: US (occurrence: US)
  Receive Date: 20200610
  Receipt Date: 20200610
  Transmission Date: 20200714
  Serious: Yes (Other)
  Sender: FDA-Public Use
  Company Number: NVSC2020US160749

PATIENT
  Age: 62 Year
  Sex: Female

DRUGS (6)
  1. CLONAZEPAM. [Suspect]
     Active Substance: CLONAZEPAM
     Indication: SEIZURE
     Dosage: UNK
     Route: 065
  2. MIDAZOLAM. [Suspect]
     Active Substance: MIDAZOLAM
     Indication: SEIZURE
     Dosage: UNK
     Route: 065
  3. PROPOFOL. [Suspect]
     Active Substance: PROPOFOL
     Indication: SEIZURE
     Dosage: TITRATED
     Route: 065
  4. FOSPHENYTOIN [Suspect]
     Active Substance: FOSPHENYTOIN
     Indication: SEIZURE
     Dosage: LOADING DOSE
     Route: 065
  5. LEVETIRACETAM. [Suspect]
     Active Substance: LEVETIRACETAM
     Indication: SEIZURE
     Dosage: LOADING DOSE
     Route: 065
  6. LORAZEPAM. [Suspect]
     Active Substance: LORAZEPAM
     Indication: SEIZURE
     Dosage: UNK
     Route: 065

REACTIONS (2)
  - Encephalopathy [Unknown]
  - Drug ineffective [Unknown]
